APPROVED DRUG PRODUCT: FERROUS CITRATE FE 59
Active Ingredient: FERROUS CITRATE, FE-59
Strength: 25uCi/ML
Dosage Form/Route: INJECTABLE;INJECTION
Application: N016729 | Product #001
Applicant: MALLINCKRODT INC
Approved: Approved Prior to Jan 1, 1982 | RLD: No | RS: No | Type: DISCN